FAERS Safety Report 4877451-4 (Version None)
Quarter: 2006Q1

REPORT INFORMATION
  Report Type: 
  Country: None (occurrence: None)
  Receive Date: 20060111
  Receipt Date: 20060106
  Transmission Date: 20060701
  Serious: Yes (Hospitalization)
  Sender: FDA-Public Use
  Company Number: FR-AVENTIS-200610052FR

PATIENT
  Age: 24 Year
  Sex: Female

DRUGS (3)
  1. CLAFORAN [Suspect]
     Indication: MENINGITIS ENTEROVIRAL
     Route: 042
     Dates: start: 20051002, end: 20051002
  2. VANCOMYCIN [Suspect]
     Indication: MENINGITIS ENTEROVIRAL
     Route: 042
     Dates: start: 20051002, end: 20051002
  3. AUGMENTIN '125' [Concomitant]
     Indication: PNEUMONIA

REACTIONS (1)
  - RASH [None]
